FAERS Safety Report 6316900-1 (Version None)
Quarter: 2009Q3

REPORT INFORMATION
  Report Type: 
  Country: None (occurrence: None)
  Receive Date: 20090820
  Receipt Date: 20090812
  Transmission Date: 20100115
  Serious: Yes (Death)
  Sender: FDA-Public Use
  Company Number: TW-BAXTER-2009BH012316

PATIENT
  Age: 68 Year
  Sex: Female

DRUGS (5)
  1. DIANEAL [Suspect]
     Indication: PERITONEAL DIALYSIS
     Route: 033
     Dates: start: 20090701
  2. DIANEAL [Suspect]
     Route: 033
     Dates: start: 20090701
  3. EXTRANEAL [Suspect]
     Indication: PERITONEAL DIALYSIS
     Route: 033
     Dates: start: 20090701
  4. DIANEAL [Suspect]
     Route: 033
     Dates: start: 20090601, end: 20090701
  5. EXTRANEAL [Suspect]
     Route: 033
     Dates: start: 20090601, end: 20090701

REACTIONS (2)
  - CARDIAC FAILURE [None]
  - METASTASIS [None]
